FAERS Safety Report 19000834 (Version 1)
Quarter: 2021Q1

REPORT INFORMATION
  Report Type: Spontaneous
  Country: NL (occurrence: NL)
  Receive Date: 20210312
  Receipt Date: 20210312
  Transmission Date: 20210420
  Serious: Yes (Hospitalization, Other)
  Sender: FDA-Public Use
  Company Number: NL-AUROBINDO-AUR-APL-2021-009509

PATIENT
  Sex: Male

DRUGS (13)
  1. VALACICLOVIR [Concomitant]
     Active Substance: VALACYCLOVIR HYDROCHLORIDE
     Indication: BACK PAIN
     Dosage: 500 MILLIGRAM
     Route: 048
     Dates: start: 20110531
  2. LYRICA [Concomitant]
     Active Substance: PREGABALIN
     Indication: BACK PAIN
     Dosage: 150 MILLIGRAM
     Route: 048
     Dates: start: 20110412, end: 20110503
  3. COTRIMOXAZOLE [Concomitant]
     Active Substance: SULFAMETHOXAZOLE\TRIMETHOPRIM
     Indication: PRODUCT USED FOR UNKNOWN INDICATION
     Dosage: 480 MILLIGRAM
     Route: 065
     Dates: start: 20110531, end: 20110531
  4. PREDNISONE. [Concomitant]
     Active Substance: PREDNISONE
     Dosage: 60 UNK
     Route: 048
     Dates: start: 20110708
  5. CELECOXIB. [Concomitant]
     Active Substance: CELECOXIB
     Indication: BACK PAIN
     Dosage: 400 MILLIGRAM
     Route: 048
     Dates: start: 20110401, end: 20110503
  6. PREDNISONE. [Concomitant]
     Active Substance: PREDNISONE
     Indication: BACK PAIN
     Dosage: 60 MILLIGRAM
     Route: 048
     Dates: start: 20110512, end: 20110519
  7. IBRITUMOMAB TIUXETAN [Suspect]
     Active Substance: IBRITUMOMAB TIUXETAN
     Indication: PRODUCT USED FOR UNKNOWN INDICATION
     Dosage: 1200 MEGABECQUEREL
     Route: 042
     Dates: start: 20110428, end: 20110428
  8. TRAMADOL HYDROCHLORIDE. [Concomitant]
     Active Substance: TRAMADOL HYDROCHLORIDE
     Indication: BACK PAIN
     Dosage: 150 MILLIGRAM
     Route: 048
     Dates: start: 20110412, end: 20110503
  9. ACICLOVIR [Concomitant]
     Active Substance: ACYCLOVIR
     Indication: BACK PAIN
     Dosage: 2550 MILLIGRAM
     Route: 042
     Dates: start: 20110511, end: 20110520
  10. PREDNISONE. [Concomitant]
     Active Substance: PREDNISONE
     Dosage: 80 MILLIGRAM
     Route: 048
     Dates: start: 20110520, end: 20110607
  11. RITUXIMAB. [Suspect]
     Active Substance: RITUXIMAB
     Indication: PRODUCT USED FOR UNKNOWN INDICATION
     Dosage: 1100 MILLIGRAM
     Route: 042
     Dates: start: 20110421, end: 20110428
  12. PARACETAMOL [Concomitant]
     Active Substance: ACETAMINOPHEN
     Indication: BACK PAIN
     Dosage: 4000 MILLIGRAM
     Route: 048
     Dates: start: 2011, end: 20110503
  13. TRAMADOL HYDROCHLORIDE. [Concomitant]
     Active Substance: TRAMADOL HYDROCHLORIDE
     Dosage: 50 MILLIGRAM
     Route: 048
     Dates: start: 20110513, end: 20110527

REACTIONS (1)
  - Polyneuropathy [Recovered/Resolved with Sequelae]

NARRATIVE: CASE EVENT DATE: 20110503
